FAERS Safety Report 13922508 (Version 1)
Quarter: 2017Q3

REPORT INFORMATION
  Report Type: Other
  Country: US (occurrence: US)
  Receive Date: 20170830
  Receipt Date: 20170830
  Transmission Date: 20171127
  Serious: Yes (Hospitalization)
  Sender: FDA-Public Use
  Company Number: US-OSMOTICA_PHARMACEUTICAL_US_LLC-POI0573201700047

PATIENT
  Age: 29 Year
  Sex: Male

DRUGS (4)
  1. RESTORIL [Suspect]
     Active Substance: TEMAZEPAM
     Indication: ANXIETY
  2. VENLAFAXINE [Suspect]
     Active Substance: VENLAFAXINE HYDROCHLORIDE
     Indication: DEPRESSION
  3. VENLAFAXINE [Suspect]
     Active Substance: VENLAFAXINE HYDROCHLORIDE
     Indication: ANXIETY
  4. RESTORIL [Suspect]
     Active Substance: TEMAZEPAM
     Indication: DEPRESSION

REACTIONS (4)
  - Septic shock [Recovered/Resolved with Sequelae]
  - Dehydration [Recovered/Resolved with Sequelae]
  - Megacolon [Recovered/Resolved with Sequelae]
  - Bacteraemia [Recovered/Resolved with Sequelae]

NARRATIVE: CASE EVENT DATE: 201605
